FAERS Safety Report 15796669 (Version 1)
Quarter: 2019Q1

REPORT INFORMATION
  Report Type: Spontaneous
  Country: CN (occurrence: CN)
  Receive Date: 20190108
  Receipt Date: 20190108
  Transmission Date: 20190417
  Serious: Yes (Other)
  Sender: FDA-Public Use
  Company Number: CN-ASTRAZENECA-2019SE01730

PATIENT
  Sex: Female
  Weight: 60 kg

DRUGS (2)
  1. IPRATROPIUM BROMIDE. [Suspect]
     Active Substance: IPRATROPIUM BROMIDE
     Indication: COUGH
     Route: 065
     Dates: start: 20181107, end: 20181107
  2. BUDESONIDE. [Suspect]
     Active Substance: BUDESONIDE
     Indication: COUGH
     Route: 055
     Dates: start: 20181107, end: 20181107

REACTIONS (8)
  - Dyspnoea [Recovering/Resolving]
  - Dizziness [Recovering/Resolving]
  - Hypoaesthesia [Recovering/Resolving]
  - Dyskinesia [Recovering/Resolving]
  - Tremor [Recovering/Resolving]
  - Paralysis [Recovering/Resolving]
  - Palpitations [Recovering/Resolving]
  - Hyperhidrosis [Recovering/Resolving]
